FAERS Safety Report 15094190 (Version 1)
Quarter: 2018Q2

REPORT INFORMATION
  Report Type: Spontaneous
  Country: CA (occurrence: CA)
  Receive Date: 20180630
  Receipt Date: 20180630
  Transmission Date: 20180711
  Serious: Yes (Hospitalization, Other)
  Sender: FDA-Public Use
  Company Number: CA-ROCHE-2146063

PATIENT
  Age: 42 Year
  Sex: Female

DRUGS (4)
  1. XOLAIR [Suspect]
     Active Substance: OMALIZUMAB
     Indication: ASTHMA
     Route: 058
     Dates: start: 20140604
  2. XOLAIR [Suspect]
     Active Substance: OMALIZUMAB
     Route: 058
     Dates: start: 20171124
  3. XOLAIR [Suspect]
     Active Substance: OMALIZUMAB
     Route: 058
     Dates: start: 20170407
  4. XOLAIR [Suspect]
     Active Substance: OMALIZUMAB
     Route: 058
     Dates: start: 20180515

REACTIONS (13)
  - Bone contusion [Unknown]
  - Concussion [Unknown]
  - Bronchitis [Unknown]
  - Malaise [Unknown]
  - Pruritus [Unknown]
  - Post-traumatic neck syndrome [Unknown]
  - Injury [Unknown]
  - Headache [Unknown]
  - Gastric ulcer [Unknown]
  - Road traffic accident [Unknown]
  - Immunodeficiency [Unknown]
  - Oropharyngeal pain [Unknown]
  - Nasopharyngitis [Recovering/Resolving]

NARRATIVE: CASE EVENT DATE: 20140604
